FAERS Safety Report 7956309-8 (Version None)
Quarter: 2011Q4

REPORT INFORMATION
  Report Type: 
  Country: None (occurrence: None)
  Receive Date: 20111125
  Receipt Date: 20111118
  Transmission Date: 20120403
  Serious: Yes (Hospitalization)
  Sender: FDA-Public Use
  Company Number: 2011030369

PATIENT
  Age: 70 Year
  Sex: Female
  Weight: 77.1115 kg

DRUGS (21)
  1. ATENOLOL [Concomitant]
  2. GLIPIZIDE [Concomitant]
  3. ARAVA [Concomitant]
  4. ADVAIR DISKUS 100/50 [Concomitant]
  5. HIZENTRA [Suspect]
     Indication: COMBINED IMMUNODEFICIENCY
     Dosage: (12 G 1X/WEEK, 60 ML VIA 3-4 SITES OVER 1.5 TO 2 HOURS SUBCUTANEOUS)
     Route: 058
     Dates: start: 20111025
  6. HIZENTRA [Suspect]
     Indication: COMBINED IMMUNODEFICIENCY
     Dosage: (12 G 1X/WEEK, 60 ML VIA 3-4 SITES OVER 1.5 TO 2 HOURS SUBCUTANEOUS)
     Route: 058
     Dates: start: 20111116, end: 20111116
  7. FOLIC ACID [Concomitant]
  8. THEOPHYLLINE [Concomitant]
  9. LIPITOR [Concomitant]
  10. HIZENTRA [Suspect]
  11. ZESTRIL [Concomitant]
  12. ATIVAN [Concomitant]
  13. PRO-AIR (PROCATEROL HYDROCHLORIDE) [Concomitant]
  14. ENBREL [Concomitant]
  15. LASIX [Concomitant]
  16. POTASSIUM CHLORIDE [Concomitant]
  17. CELEXA [Concomitant]
  18. PREVACID [Concomitant]
  19. PLAVIX [Concomitant]
  20. XOLAIR [Concomitant]
  21. VITAMIN D [Concomitant]

REACTIONS (1)
  - BRONCHITIS [None]
